FAERS Safety Report 10610436 (Version 1)
Quarter: 2014Q4

REPORT INFORMATION
  Report Type: Spontaneous
  Country: FR (occurrence: None)
  Receive Date: 20141124
  Receipt Date: 20141124
  Transmission Date: 20150529
  Serious: Yes (Other)
  Sender: FDA-Public Use
  Company Number: FR-SEPTODONT-201402308

PATIENT
  Age: 25 Year
  Sex: Female

DRUGS (1)
  1. SCANDICAINE 30 MG/ML, SOLUTION INJECTABLE AUSAGE DENTAIRE MEPIVACAINE HYDROCHLORIDE [Suspect]
     Active Substance: MEPIVACAINE HYDROCHLORIDE
     Indication: LOCAL ANAESTHESIA
     Route: 004
     Dates: start: 1979

REACTIONS (8)
  - Dysphagia [None]
  - Fatigue [None]
  - Bed rest [None]
  - Loss of consciousness [None]
  - Toxicity to various agents [None]
  - Dyspepsia [None]
  - Malaise [None]
  - Weight decreased [None]

NARRATIVE: CASE EVENT DATE: 1979
